FAERS Safety Report 4802252-2 (Version None)
Quarter: 2005Q4

REPORT INFORMATION
  Report Type: 
  Country: None (occurrence: None)
  Receive Date: 20051012
  Receipt Date: 20050928
  Transmission Date: 20060501
  Serious: Yes (Hospitalization)
  Sender: FDA-Public Use
  Company Number: CAMP-10026

PATIENT
  Age: 49 Year
  Sex: Female
  Weight: 68.4932 kg

DRUGS (6)
  1. CAMPATH [Suspect]
     Indication: MULTIPLE SCLEROSIS
     Dosage: 12 MG QD IV
     Route: 042
     Dates: start: 20030721, end: 20030725
  2. CAMPATH [Suspect]
     Indication: MULTIPLE SCLEROSIS
     Dosage: 12 MG QD IV
     Route: 042
     Dates: start: 20040719, end: 20040721
  3. CAMPATH [Suspect]
     Indication: MULTIPLE SCLEROSIS
     Dosage: 12 MG QD IV
     Route: 042
     Dates: start: 20050725, end: 20050727
  4. RITALIN [Concomitant]
  5. PROVIGIL [Concomitant]
  6. BENADRYL [Concomitant]

REACTIONS (7)
  - AFFECT LABILITY [None]
  - CONTUSION [None]
  - DRUG RESISTANCE [None]
  - ECCHYMOSIS [None]
  - HAEMOGLOBIN DECREASED [None]
  - IDIOPATHIC THROMBOCYTOPENIC PURPURA [None]
  - PYREXIA [None]
